FAERS Safety Report 7296241-9 (Version None)
Quarter: 2011Q1

REPORT INFORMATION
  Report Type: 
  Country: None (occurrence: None)
  Receive Date: 20110216
  Receipt Date: 20110209
  Transmission Date: 20110831
  Serious: Yes (Other)
  Sender: FDA-Public Use
  Company Number: BR-ASTRAZENECA-2011SE08152

PATIENT
  Age: 35 Year
  Sex: Male

DRUGS (2)
  1. AMIODARONE [Concomitant]
  2. ATENOLOL [Suspect]
     Indication: HYPERTENSION

REACTIONS (1)
  - DYSPNOEA EXERTIONAL [None]
